FAERS Safety Report 6702528-8 (Version None)
Quarter: 2010Q2

REPORT INFORMATION
  Report Type: 
  Country: None (occurrence: None)
  Receive Date: 20100429
  Receipt Date: 20100422
  Transmission Date: 20101027
  Serious: Yes (Hospitalization)
  Sender: FDA-Public Use
  Company Number: CN-ROCHE-698917

PATIENT
  Sex: Male
  Weight: 49 kg

DRUGS (7)
  1. PEGINTERFERON ALFA-2A [Suspect]
     Indication: DRUG USE FOR UNKNOWN INDICATION
     Route: 058
     Dates: start: 20091221, end: 20100412
  2. RIBAVIRIN [Suspect]
     Indication: DRUG USE FOR UNKNOWN INDICATION
     Dosage: FORM: CAPSULE
     Route: 048
     Dates: start: 20091221, end: 20100412
  3. STAVUDINE [Suspect]
     Indication: DRUG USE FOR UNKNOWN INDICATION
     Route: 048
     Dates: start: 20100118
  4. LAMIVUDINE [Suspect]
     Indication: DRUG USE FOR UNKNOWN INDICATION
     Dosage: 0.3 QD
     Route: 048
     Dates: start: 20090928
  5. EFAVIRENZ [Suspect]
     Indication: DRUG USE FOR UNKNOWN INDICATION
     Dosage: TDD: 0.6 QN
     Route: 048
     Dates: start: 20091107
  6. ZIDOVUDINE [Concomitant]
     Dosage: TDD: 0.3
     Dates: start: 20090928, end: 20100117
  7. NEVIRAPINE [Concomitant]
     Dates: start: 20090928, end: 20091031

REACTIONS (1)
  - LACTIC ACIDOSIS [None]
